FAERS Safety Report 12318385 (Version 1)
Quarter: 2016Q2

REPORT INFORMATION
  Report Type: Spontaneous
  Country: US (occurrence: US)
  Receive Date: 20160429
  Receipt Date: 20160429
  Transmission Date: 20160815
  Serious: No
  Sender: FDA-Public Use
  Company Number: US-VALIDUS PHARMACEUTICALS LLC-US-2015VAL000498

PATIENT

DRUGS (5)
  1. SIMVASTATIN. [Suspect]
     Active Substance: SIMVASTATIN
     Indication: PRODUCT USED FOR UNKNOWN INDICATION
     Dosage: 40 MG, UNK
  2. TEKTURNA HCT [Suspect]
     Active Substance: ALISKIREN HEMIFUMARATE\HYDROCHLOROTHIAZIDE
     Dosage: 0.5 DF, (HALF TABLET)
  3. METOPROLOL TARTRATE. [Suspect]
     Active Substance: METOPROLOL TARTRATE
     Indication: PRODUCT USED FOR UNKNOWN INDICATION
     Dosage: 2 DF, QD
  4. TEKTURNA HCT [Suspect]
     Active Substance: ALISKIREN HEMIFUMARATE\HYDROCHLOROTHIAZIDE
     Indication: PRODUCT USED FOR UNKNOWN INDICATION
     Dosage: 1 DF (300 ALISKIREN, 25 (UNITS UNSPECIFIED) HYRDOCHLOROTHIAZIDE)
  5. TEKTURNA HCT [Suspect]
     Active Substance: ALISKIREN HEMIFUMARATE\HYDROCHLOROTHIAZIDE
     Dosage: 1 DF (300 ALISKIREN, 25 (UNITS UNSPECIFIED) HYRDOCHLOROTHIAZIDE)

REACTIONS (2)
  - Blood pressure inadequately controlled [Unknown]
  - Off label use [Unknown]
